FAERS Safety Report 8135847-1 (Version None)
Quarter: 2012Q1

REPORT INFORMATION
  Report Type: 
  Country: None (occurrence: None)
  Receive Date: 20120214
  Receipt Date: 20120207
  Transmission Date: 20120608
  Serious: Yes (Hospitalization)
  Sender: FDA-Public Use
  Company Number: US-GLAXOSMITHKLINE-A0961827A

PATIENT
  Age: 57 Year
  Sex: Female
  Weight: 104.5 kg

DRUGS (15)
  1. LASIX [Concomitant]
  2. FOLIC ACID [Concomitant]
  3. LANTUS [Concomitant]
  4. FLOLAN [Suspect]
     Indication: PULMONARY ARTERIAL HYPERTENSION
     Dosage: 8NGKM SEE DOSAGE TEXT
     Route: 042
     Dates: start: 20111028
  5. HUMALOG [Concomitant]
  6. (TYLENOL EXTRA STRENGTH) ACETAMINOPHEN [Concomitant]
  7. BUMETANIDE [Concomitant]
  8. MACRODANTIN [Concomitant]
  9. LOVAZA [Concomitant]
  10. MULTI-VITAMIN [Concomitant]
  11. SPIRONOLACTONE [Concomitant]
  12. NYSTATIN [Concomitant]
  13. DIGOXIN [Concomitant]
  14. ALDACTONE [Concomitant]
  15. TRAMADOL HCL [Concomitant]

REACTIONS (7)
  - HYPOXIA [None]
  - RIGHT VENTRICULAR FAILURE [None]
  - HYPERKALAEMIA [None]
  - URINARY TRACT INFECTION [None]
  - BLOOD CREATININE INCREASED [None]
  - HYPOTENSION [None]
  - CARDIAC FAILURE CONGESTIVE [None]
